FAERS Safety Report 17191638 (Version 4)
Quarter: 2020Q1

REPORT INFORMATION
  Report Type: Spontaneous
  Country: JP (occurrence: JP)
  Receive Date: 20191223
  Receipt Date: 20200306
  Transmission Date: 20200409
  Serious: Yes (Death, Hospitalization, Other)
  Sender: FDA-Public Use
  Company Number: JP-FERRINGPH-2019FE08423

PATIENT
  Age: 72 Year
  Sex: Male
  Weight: 80 kg

DRUGS (22)
  1. PRAMIPEXOLE HYDROCHLORIDE [Concomitant]
     Active Substance: PRAMIPEXOLE DIHYDROCHLORIDE
     Dosage: UNK
     Route: 065
     Dates: start: 20130321, end: 20191122
  2. OXYCONTIN TR [Concomitant]
     Active Substance: OXYCODONE HYDROCHLORIDE
     Dosage: UNK
     Route: 065
     Dates: start: 20191029, end: 20191121
  3. TENELIA [Concomitant]
     Active Substance: TENELIGLIPTIN
     Dosage: UNK
     Route: 065
     Dates: start: 20191029, end: 20191122
  4. IRBESARTAN;S AMLODIPINE NICOTINATE [Concomitant]
     Route: 065
  5. MINOPHAGEN C [CYSTEINE;GLYCINE;GLYCYRRHIZIC ACID] [Concomitant]
     Dosage: UNK
     Route: 065
     Dates: start: 20191121, end: 20191123
  6. ADELAVIN NO.9 [Concomitant]
     Dosage: UNK
     Route: 065
     Dates: start: 20191121, end: 20191123
  7. AMBROXOL HYDROCHLORIDE [Concomitant]
     Active Substance: AMBROXOL HYDROCHLORIDE
     Dosage: UNK
     Route: 065
     Dates: start: 20050829, end: 20191122
  8. BICALUTAMIDE. [Concomitant]
     Active Substance: BICALUTAMIDE
     Dosage: UNK
     Route: 065
     Dates: start: 20191015, end: 20191122
  9. GLICLAZIDE [Concomitant]
     Active Substance: GLICLAZIDE
     Dosage: UNK
     Route: 065
     Dates: start: 20191029, end: 20191122
  10. BICANATE [Concomitant]
     Dosage: UNK
     Route: 065
     Dates: start: 20191113, end: 20191123
  11. PRANLUKAST [Concomitant]
     Active Substance: PRANLUKAST
     Dosage: UNK
     Route: 065
     Dates: start: 20050829, end: 20191122
  12. TRIAZOLAM. [Concomitant]
     Active Substance: TRIAZOLAM
     Dosage: UNK
     Route: 065
     Dates: start: 20061021, end: 20191122
  13. GONAX [Suspect]
     Active Substance: DEGARELIX
     Indication: PROSTATE CANCER
     Dosage: 80 MG, EVERY 4 WEEKS
     Route: 058
     Dates: start: 20191115, end: 20191115
  14. OPSO [Concomitant]
     Active Substance: MORPHINE HYDROCHLORIDE
     Dosage: UNK
     Route: 065
     Dates: start: 20191114, end: 20191118
  15. AMINOLEBAN [Concomitant]
     Active Substance: AMINO ACIDS, SOURCE UNSPECIFIED
     Dosage: UNK
     Route: 065
     Dates: start: 20191121, end: 20191123
  16. GONAX [Suspect]
     Active Substance: DEGARELIX
     Dosage: 120 MG, DAILY
     Route: 058
     Dates: start: 20191018, end: 20191114
  17. CELECOX [Concomitant]
     Active Substance: CELECOXIB
     Dosage: UNK
     Route: 065
     Dates: start: 20191029, end: 20191122
  18. TATHION [Concomitant]
     Active Substance: GLUTATHIONE
     Dosage: UNK
     Route: 065
     Dates: start: 20191121, end: 20191123
  19. FLUNITRAZEPAM [Concomitant]
     Active Substance: FLUNITRAZEPAM
     Dosage: UNK
     Route: 065
     Dates: start: 20061021, end: 20191122
  20. NEXIUM I.V. [Concomitant]
     Active Substance: ESOMEPRAZOLE SODIUM
     Dosage: UNK
     Route: 065
     Dates: start: 2012, end: 20191122
  21. AZILVA [Concomitant]
     Active Substance: AZILSARTAN KAMEDOXOMIL
     Dosage: UNK
     Route: 065
     Dates: start: 20191120
  22. BFLUID [Concomitant]
     Active Substance: AMINO ACIDS\DEXTROSE\ELECTROLYTES NOS\VITAMINS
     Dosage: UNK
     Route: 065
     Dates: start: 20191114, end: 20191120

REACTIONS (4)
  - Hyperglycaemia [Recovered/Resolved]
  - Respiratory failure [Fatal]
  - Hepatic encephalopathy [Not Recovered/Not Resolved]
  - Dehydration [Recovered/Resolved]

NARRATIVE: CASE EVENT DATE: 20191113
